FAERS Safety Report 19739465 (Version 1)
Quarter: 2021Q3

REPORT INFORMATION
  Report Type: Spontaneous
  Country: US (occurrence: US)
  Receive Date: 20210824
  Receipt Date: 20210824
  Transmission Date: 20211014
  Serious: Yes (Other)
  Sender: FDA-Public Use
  Company Number: US-INDIVIOR EUROPE LIMITED-INDV-130842-2021

PATIENT

DRUGS (4)
  1. SUBLOCADE [Suspect]
     Active Substance: BUPRENORPHINE
     Dosage: 300 MILLIGRAM, QMO (LAST INJECTION)
     Route: 030
     Dates: start: 2021
  2. SUBOXONE [Suspect]
     Active Substance: BUPRENORPHINE HYDROCHLORIDE\NALOXONE HYDROCHLORIDE
     Indication: DRUG USE DISORDER
     Dosage: UNK
     Route: 065
  3. SUBLOCADE [Suspect]
     Active Substance: BUPRENORPHINE
     Indication: DRUG USE DISORDER
     Dosage: 300 MILLIGRAM, QMO
     Route: 065
  4. JANSSEN COVID?19 VACCINE [Suspect]
     Active Substance: AD26.COV2.S
     Dosage: UNK
     Route: 030
     Dates: start: 2021, end: 2021

REACTIONS (8)
  - Hyperhidrosis [Unknown]
  - Incorrect route of product administration [Recovered/Resolved]
  - Hyposmia [Unknown]
  - Insomnia [Unknown]
  - Wrong technique in product usage process [Recovered/Resolved]
  - Disorientation [Unknown]
  - Hallucination [Unknown]
  - Hypogeusia [Unknown]

NARRATIVE: CASE EVENT DATE: 2021
